FAERS Safety Report 6915439-X (Version None)
Quarter: 2010Q3

REPORT INFORMATION
  Report Type: 
  Country: None (occurrence: None)
  Receive Date: 20100809
  Receipt Date: 20100511
  Transmission Date: 20110219
  Serious: No
  Sender: FDA-Public Use
  Company Number: US-ABBOTT-10P-163-0644930-00

PATIENT
  Sex: Female

DRUGS (2)
  1. DEPAKOTE ER [Suspect]
     Indication: MOOD SWINGS
     Dates: start: 20091001
  2. ABILIFY [Suspect]
     Indication: MOOD SWINGS

REACTIONS (2)
  - DRUG DOSE OMISSION [None]
  - PARAESTHESIA [None]
